FAERS Safety Report 6732753-1 (Version None)
Quarter: 2010Q2

REPORT INFORMATION
  Report Type: 
  Country: None (occurrence: None)
  Receive Date: 20100519
  Receipt Date: 20100510
  Transmission Date: 20101027
  Serious: Yes (Other)
  Sender: FDA-Public Use
  Company Number: US-AMGEN-QUU351471

PATIENT
  Sex: Female

DRUGS (7)
  1. ENBREL [Suspect]
     Indication: RHEUMATOID ARTHRITIS
     Route: 058
     Dates: start: 20050301, end: 20090925
  2. GLUCOPHAGE [Concomitant]
     Dates: start: 20020101
  3. METHOTREXATE [Concomitant]
     Dates: start: 20030901
  4. LIPITOR [Concomitant]
     Dates: start: 20020101
  5. TOPROL-XL [Concomitant]
     Dates: start: 20020101
  6. PREDNISONE TAB [Concomitant]
     Dates: start: 20030901
  7. FOLIC ACID [Concomitant]
     Dates: start: 20030901

REACTIONS (2)
  - DEMENTIA ALZHEIMER'S TYPE [None]
  - RHEUMATOID ARTHRITIS [None]
